FAERS Safety Report 23105246 (Version 1)
Quarter: 2023Q4

REPORT INFORMATION
  Report Type: Spontaneous
  Country: US (occurrence: None)
  Receive Date: 20231023
  Receipt Date: 20231023
  Transmission Date: 20240109
  Serious: Yes (Hospitalization)
  Sender: FDA-Public Use
  Company Number: None

PATIENT
  Age: 74 Year
  Sex: Male
  Weight: 94.8 kg

DRUGS (3)
  1. EMPAGLIFLOZIN [Suspect]
     Active Substance: EMPAGLIFLOZIN
     Dosage: FREQUENCY : DAILY;?
     Route: 048
     Dates: start: 20230121, end: 20230203
  2. METFORMIN [Suspect]
     Active Substance: METFORMIN HYDROCHLORIDE
  3. ALOGLIPTIN [Suspect]
     Active Substance: ALOGLIPTIN

REACTIONS (3)
  - Euglycaemic diabetic ketoacidosis [None]
  - Pancreatitis necrotising [None]
  - Bacteraemia [None]

NARRATIVE: CASE EVENT DATE: 20230205
